FAERS Safety Report 17372386 (Version 3)
Quarter: 2020Q2

REPORT INFORMATION
  Report Type: Report from Study
  Country: BR (occurrence: BR)
  Receive Date: 20200205
  Receipt Date: 20200608
  Transmission Date: 20200713
  Serious: Yes (Hospitalization)
  Sender: FDA-Public Use
  Company Number: BR-ELI_LILLY_AND_COMPANY-BR202001011753

PATIENT
  Sex: Female

DRUGS (2)
  1. TERIPARATIDE [Suspect]
     Active Substance: TERIPARATIDE
     Indication: OSTEOPOROSIS
  2. TERIPARATIDE [Suspect]
     Active Substance: TERIPARATIDE
     Indication: BONE DISORDER
     Dosage: UNK UNK, UNKNOWN
     Route: 065
     Dates: start: 2019, end: 201910

REACTIONS (9)
  - Angiopathy [Unknown]
  - Thrombosis [Unknown]
  - Blood iron decreased [Unknown]
  - Anaemia [Not Recovered/Not Resolved]
  - Electrolyte imbalance [Unknown]
  - Varicose vein [Unknown]
  - Serum ferritin decreased [Unknown]
  - Serum ferritin increased [Unknown]
  - Gastrointestinal injury [Unknown]
